FAERS Safety Report 14302744 (Version 4)
Quarter: 2018Q1

REPORT INFORMATION
  Report Type: Spontaneous
  Country: US (occurrence: US)
  Receive Date: 20171219
  Receipt Date: 20180307
  Transmission Date: 20180509
  Serious: No
  Sender: FDA-Public Use
  Company Number: US-LUNDBECK-DKLU2041323

PATIENT
  Age: 25 Year
  Sex: Female

DRUGS (1)
  1. NORTHERA [Suspect]
     Active Substance: DROXIDOPA
     Indication: ORTHOSTATIC HYPOTENSION
     Dosage: SCHEDULE A
     Route: 048
     Dates: start: 20171206, end: 20180215

REACTIONS (9)
  - Drug dose titration not performed [Unknown]
  - Drug dose omission [Unknown]
  - Initial insomnia [Recovered/Resolved]
  - Nausea [Unknown]
  - Headache [Unknown]
  - Palpitations [Unknown]
  - Erythema [Unknown]
  - Pyrexia [Unknown]
  - Skin reaction [Unknown]

NARRATIVE: CASE EVENT DATE: 201712
